FAERS Safety Report 15696574 (Version 1)
Quarter: 2018Q4

REPORT INFORMATION
  Report Type: Spontaneous
  Country: PT (occurrence: PT)
  Receive Date: 20181206
  Receipt Date: 20181206
  Transmission Date: 20190205
  Serious: Yes (Other)
  Sender: FDA-Public Use
  Company Number: PT-ALSI-201800632

PATIENT
  Sex: Male

DRUGS (1)
  1. CARBON DIOXIDE. [Suspect]
     Active Substance: CARBON DIOXIDE
     Indication: VENOGRAM

REACTIONS (2)
  - Off label use [Unknown]
  - Cerebral gas embolism [Unknown]
